FAERS Safety Report 7957767-5 (Version None)
Quarter: 2011Q4

REPORT INFORMATION
  Report Type: 
  Country: None (occurrence: None)
  Receive Date: 20111205
  Receipt Date: 20111202
  Transmission Date: 20120403
  Serious: Yes (Death, Life-Threatening, Hospitalization, Other)
  Sender: FDA-Public Use
  Company Number: PHFR2011GB006588

PATIENT
  Sex: Male

DRUGS (6)
  1. HALOPERIDOL [Concomitant]
     Dosage: 5-10 MG, PRN
     Route: 048
  2. CLONAZEPAM [Concomitant]
     Dosage: 1 MG, MANE
     Route: 048
  3. LITHIUM CARBONATE [Concomitant]
     Dosage: 800 MG, NOCTE
     Route: 048
  4. CLONAZEPAM [Concomitant]
     Dosage: 0.5 MG, BID
     Route: 048
  5. CLOZARIL [Suspect]
     Indication: SCHIZOPHRENIA
     Dosage: 350 MG/DAY
     Route: 048
     Dates: start: 20081218
  6. HYOSCINE HYDROBROMIDE [Concomitant]
     Dosage: 300 UG/DAY
     Route: 048

REACTIONS (4)
  - CARDIOPULMONARY FAILURE [None]
  - WHITE BLOOD CELL COUNT INCREASED [None]
  - PNEUMONIA [None]
  - NEUTROPHIL COUNT INCREASED [None]
